FAERS Safety Report 5311834-3 (Version None)
Quarter: 2007Q2

REPORT INFORMATION
  Report Type: 
  Country: None (occurrence: None)
  Receive Date: 20070430
  Receipt Date: 20060601
  Transmission Date: 20071010
  Serious: No
  Sender: FDA-Public Use
  Company Number: 2006UW05192

PATIENT
  Age: 85 Year
  Sex: Male
  Weight: 96.6 kg

DRUGS (11)
  1. NEXIUM [Suspect]
     Indication: GASTRIC ULCER
     Route: 048
     Dates: start: 20060304, end: 20060316
  2. NEXIUM [Suspect]
     Indication: GASTROOESOPHAGEAL REFLUX DISEASE
     Route: 048
     Dates: start: 20060304, end: 20060316
  3. DILTIAZEM [Concomitant]
  4. ALTACE [Concomitant]
  5. BETAPACE [Concomitant]
  6. ASPIRIN [Concomitant]
  7. PERCOCET [Concomitant]
  8. DALMANE [Concomitant]
  9. FOSAMAX [Concomitant]
  10. GLYBURIDE [Concomitant]
  11. LOVASTATIN [Concomitant]

REACTIONS (1)
  - BLOOD GLUCOSE INCREASED [None]
